FAERS Safety Report 8472445-4 (Version None)
Quarter: 2012Q2

REPORT INFORMATION
  Report Type: 
  Country: None (occurrence: None)
  Receive Date: 20120627
  Receipt Date: 20111113
  Transmission Date: 20120825
  Serious: No
  Sender: FDA-Public Use
  Company Number: US-AMGEN-USASP2011059703

PATIENT
  Sex: Male

DRUGS (2)
  1. EPOGEN [Suspect]
     Indication: RENAL FAILURE CHRONIC
     Dosage: 8000 IU, UNK
     Dates: start: 20111103
  2. EPOGEN [Suspect]
     Dosage: 4000 IU, UNK
     Dates: start: 20100101, end: 20111101

REACTIONS (2)
  - FATIGUE [None]
  - THERAPEUTIC RESPONSE DECREASED [None]
